FAERS Safety Report 17719660 (Version 1)
Quarter: 2020Q2

REPORT INFORMATION
  Report Type: Spontaneous
  Country: US (occurrence: US)
  Receive Date: 20200428
  Receipt Date: 20200428
  Transmission Date: 20200714
  Serious: Yes (Life-Threatening, Hospitalization, Other)
  Sender: FDA-Public Use
  Company Number: US-NAPPMUNDI-USA-2020-0152065

PATIENT
  Sex: Female

DRUGS (3)
  1. PERCOCET [Suspect]
     Active Substance: ACETAMINOPHEN\OXYCODONE HYDROCHLORIDE
     Indication: PRODUCT USED FOR UNKNOWN INDICATION
     Dosage: UNK
     Route: 065
     Dates: start: 1979, end: 2015
  2. DILAUDID [Suspect]
     Active Substance: HYDROMORPHONE HYDROCHLORIDE
     Indication: PRODUCT USED FOR UNKNOWN INDICATION
     Dosage: UNK
     Route: 048
     Dates: end: 2015
  3. IBUPROFEN. [Concomitant]
     Active Substance: IBUPROFEN
     Indication: PRODUCT USED FOR UNKNOWN INDICATION
     Dosage: 800 MG, UNK
     Route: 048

REACTIONS (12)
  - Surgery [Unknown]
  - Suicidal ideation [Unknown]
  - Hip surgery [Unknown]
  - Mental disorder [Not Recovered/Not Resolved]
  - Near death experience [Unknown]
  - Quality of life decreased [Unknown]
  - Drug dependence [Unknown]
  - Hysterectomy [Unknown]
  - Overdose [Unknown]
  - Intentional overdose [Unknown]
  - Neck surgery [Unknown]
  - Shoulder operation [Unknown]

NARRATIVE: CASE EVENT DATE: 2015
